FAERS Safety Report 9707286 (Version 1)
Quarter: 2013Q4

REPORT INFORMATION
  Report Type: Spontaneous
  Country: GB (occurrence: GB)
  Receive Date: 20131125
  Receipt Date: 20131125
  Transmission Date: 20140711
  Serious: Yes (Hospitalization)
  Sender: FDA-Public Use
  Company Number: GB-MALLINCKRODT-T201304845

PATIENT
  Age: 89 Year
  Sex: Female

DRUGS (6)
  1. OPTIRAY [Suspect]
     Indication: PRODUCT USED FOR UNKNOWN INDICATION
     Dosage: 138 ML, SINGLE
     Route: 042
     Dates: start: 20131030, end: 20131030
  2. ALLOPURINOL [Concomitant]
  3. ASPIRIN [Concomitant]
  4. BISOPROLOL [Concomitant]
  5. LISINOPRIL [Concomitant]
  6. SIMVASTATIN [Concomitant]

REACTIONS (8)
  - Hypersensitivity [Unknown]
  - Renal impairment [Unknown]
  - Rash generalised [Not Recovered/Not Resolved]
  - Rash pruritic [Not Recovered/Not Resolved]
  - Mobility decreased [Not Recovered/Not Resolved]
  - Sepsis [Unknown]
  - Dyspnoea [Not Recovered/Not Resolved]
  - Urinary tract infection [Unknown]
